FAERS Safety Report 9824276 (Version 1)
Quarter: 2014Q1

REPORT INFORMATION
  Report Type: Spontaneous
  Country: US (occurrence: US)
  Receive Date: 20140116
  Receipt Date: 20140116
  Transmission Date: 20141002
  Serious: No
  Sender: FDA-Public Use
  Company Number: US-GILEAD-2011-0037387

PATIENT
  Age: 50 Year
  Sex: Female

DRUGS (3)
  1. LETAIRIS [Suspect]
     Indication: PRODUCT USED FOR UNKNOWN INDICATION
     Route: 048
     Dates: start: 201009
  2. LETAIRIS [Suspect]
     Route: 048
     Dates: start: 20090902
  3. ADCIRCA [Concomitant]

REACTIONS (1)
  - Liver function test abnormal [Unknown]
